FAERS Safety Report 16213881 (Version 1)
Quarter: 2019Q2

REPORT INFORMATION
  Report Type: Spontaneous
  Country: US (occurrence: US)
  Receive Date: 20190418
  Receipt Date: 20190418
  Transmission Date: 20190711
  Serious: No
  Sender: FDA-Public Use
  Company Number: US-SEBELA IRELAND LIMITED-2018SEB00162

PATIENT
  Sex: Female

DRUGS (2)
  1. IMURAN [Suspect]
     Active Substance: AZATHIOPRINE
     Indication: RHEUMATOID ARTHRITIS
     Dosage: UNK
     Dates: start: 201710
  2. IMURAN [Suspect]
     Active Substance: AZATHIOPRINE
     Dosage: INCREASED OVER 6-8 WEEKS THEN STOP
     Dates: end: 201805

REACTIONS (2)
  - Pain in extremity [Unknown]
  - Dizziness [Unknown]
